FAERS Safety Report 24057490 (Version 1)
Quarter: 2024Q3

REPORT INFORMATION
  Report Type: Spontaneous
  Country: ES (occurrence: ES)
  Receive Date: 20240706
  Receipt Date: 20240706
  Transmission Date: 20241016
  Serious: Yes (Other)
  Sender: AUROBINDO
  Company Number: ES-AEMPS-1541914

PATIENT
  Age: 73 Year
  Sex: Male

DRUGS (1)
  1. OXALIPLATIN [Suspect]
     Active Substance: OXALIPLATIN
     Indication: Product used for unknown indication
     Dosage: UNK
     Route: 042
     Dates: start: 20240322, end: 20240322

REACTIONS (2)
  - Administration site extravasation [Recovered/Resolved]
  - Paravenous drug administration [Recovered/Resolved]

NARRATIVE: CASE EVENT DATE: 20240322
